FAERS Safety Report 5655132-7 (Version None)
Quarter: 2008Q1

REPORT INFORMATION
  Report Type: 
  Country: None (occurrence: None)
  Receive Date: 20080307
  Receipt Date: 20080108
  Transmission Date: 20080703
  Serious: Yes (Other)
  Sender: FDA-Public Use
  Company Number: A0702462A

PATIENT
  Sex: Female

DRUGS (1)
  1. REQUIP [Suspect]
     Indication: DRUG USE FOR UNKNOWN INDICATION
     Dosage: 1MG UNKNOWN
     Route: 048

REACTIONS (5)
  - AMNESIA [None]
  - BLINDNESS [None]
  - HEPATITIS C [None]
  - OEDEMA PERIPHERAL [None]
  - TINNITUS [None]
